FAERS Safety Report 9249859 (Version 4)
Quarter: 2014Q3

REPORT INFORMATION
  Report Type: Spontaneous
  Country: US (occurrence: US)
  Receive Date: 20130423
  Receipt Date: 20140806
  Transmission Date: 20150326
  Serious: Yes (Hospitalization, Disabling, Other)
  Sender: FDA-Public Use
  Company Number: US-009507513-1304USA007430

PATIENT
  Sex: Female
  Weight: 63.49 kg

DRUGS (1)
  1. NUVARING [Suspect]
     Active Substance: ETHINYL ESTRADIOL\ETONOGESTREL
     Indication: CONTRACEPTION
     Dosage: UNK
     Route: 067
     Dates: start: 200810, end: 200905

REACTIONS (9)
  - Heart valve incompetence [Unknown]
  - Road traffic accident [Unknown]
  - Deep vein thrombosis [Unknown]
  - Emotional disorder [Unknown]
  - Anaemia [Unknown]
  - Adverse event [Not Recovered/Not Resolved]
  - Pain [Unknown]
  - Pulmonary embolism [Unknown]
  - Intervertebral disc protrusion [Unknown]

NARRATIVE: CASE EVENT DATE: 200901
